FAERS Safety Report 14534182 (Version 2)
Quarter: 2018Q4

REPORT INFORMATION
  Report Type: Spontaneous
  Country: CA (occurrence: CA)
  Receive Date: 20180215
  Receipt Date: 20181116
  Transmission Date: 20190204
  Serious: Yes (Hospitalization)
  Sender: FDA-Public Use
  Company Number: CA-ROCHE-2075164

PATIENT
  Age: 51 Year
  Sex: Male

DRUGS (4)
  1. XOLAIR [Suspect]
     Active Substance: OMALIZUMAB
     Indication: ASTHMA
     Route: 058
     Dates: start: 20111222
  2. XOLAIR [Suspect]
     Active Substance: OMALIZUMAB
     Route: 058
     Dates: start: 20171221
  3. AMOXICLAV [Concomitant]
     Active Substance: AMOXICILLIN\CLAVULANATE POTASSIUM
     Indication: DENTAL DISORDER PROPHYLAXIS
     Dosage: FOR 5 DAYS
     Route: 065
     Dates: start: 2018
  4. XOLAIR [Suspect]
     Active Substance: OMALIZUMAB
     Route: 058
     Dates: start: 20181011

REACTIONS (1)
  - Venous thrombosis limb [Recovering/Resolving]

NARRATIVE: CASE EVENT DATE: 20180114
